FAERS Safety Report 6354716-0 (Version None)
Quarter: 2009Q3

REPORT INFORMATION
  Report Type: 
  Country: None (occurrence: None)
  Receive Date: 20090914
  Receipt Date: 20090908
  Transmission Date: 20100115
  Serious: Yes (Hospitalization, Other)
  Sender: FDA-Public Use
  Company Number: US-ELI_LILLY_AND_COMPANY-US200909001837

PATIENT
  Age: 83 Year
  Sex: Female

DRUGS (2)
  1. HUMULIN 70/30 [Suspect]
     Dosage: 44 U, DAILY (1/D)
  2. HUMULIN N [Suspect]

REACTIONS (8)
  - BLOOD GLUCOSE DECREASED [None]
  - CARDIAC FAILURE CONGESTIVE [None]
  - FLUID RETENTION [None]
  - HOSPITALISATION [None]
  - HYPERGLYCAEMIA [None]
  - MYOCARDIAL INFARCTION [None]
  - RENAL DISORDER [None]
  - RENAL IMPAIRMENT [None]
